FAERS Safety Report 24825917 (Version 7)
Quarter: 2025Q2

REPORT INFORMATION
  Report Type: Report from Study
  Country: US (occurrence: US)
  Receive Date: 20250109
  Receipt Date: 20250613
  Transmission Date: 20250717
  Serious: Yes (Hospitalization)
  Sender: SANOFI AVENTIS
  Company Number: US-SA-2025SA006768

PATIENT
  Age: 64 Year
  Sex: Male
  Weight: 122.4 kg

DRUGS (11)
  1. DOCETAXEL [Suspect]
     Active Substance: DOCETAXEL
     Indication: Hormone-refractory prostate cancer
     Dosage: 75 MG/M2, Q3W
     Route: 042
     Dates: start: 20240410, end: 20240410
  2. DOCETAXEL [Suspect]
     Active Substance: DOCETAXEL
     Dosage: 75 MG/M2, Q3W
     Route: 042
     Dates: start: 20241120, end: 20241120
  3. PREDNISONE [Suspect]
     Active Substance: PREDNISONE
     Indication: Hormone-refractory prostate cancer
     Dosage: 5 MG, QD
     Route: 048
     Dates: start: 20240410, end: 20241230
  4. PREDNISONE [Suspect]
     Active Substance: PREDNISONE
     Route: 048
     Dates: start: 20241231, end: 20241231
  5. LORIGERLIMAB [Suspect]
     Active Substance: LORIGERLIMAB
     Indication: Hormone-refractory prostate cancer
     Dosage: 6 MG/KG, Q3W
     Route: 042
     Dates: start: 20240410, end: 20240410
  6. LORIGERLIMAB [Suspect]
     Active Substance: LORIGERLIMAB
     Dosage: 6 MG/KG, Q3W
     Route: 042
     Dates: start: 20241210, end: 20241210
  7. ELIQUIS [Concomitant]
     Active Substance: APIXABAN
     Dates: start: 20240612
  8. LIPITOR [Concomitant]
     Active Substance: ATORVASTATIN CALCIUM
     Dates: start: 20230418
  9. FLEXERIL [Concomitant]
     Active Substance: CYCLOBENZAPRINE HYDROCHLORIDE
     Dates: start: 20241205
  10. GLUCOPHAGE XR [Concomitant]
     Active Substance: METFORMIN HYDROCHLORIDE
     Dates: start: 20240930
  11. ATARAX [Concomitant]
     Active Substance: HYDROXYZINE HYDROCHLORIDE
     Dates: start: 20241206

REACTIONS (4)
  - Hypoxia [Recovered/Resolved]
  - Hypotension [Recovered/Resolved]
  - Pyrexia [Recovered/Resolved]
  - Adrenal insufficiency [Not Recovered/Not Resolved]

NARRATIVE: CASE EVENT DATE: 20241212
